FAERS Safety Report 13961557 (Version 2)
Quarter: 2017Q4

REPORT INFORMATION
  Report Type: Spontaneous
  Country: GR (occurrence: GR)
  Receive Date: 20170912
  Receipt Date: 20171106
  Transmission Date: 20180320
  Serious: Yes (Other)
  Sender: FDA-Public Use
  Company Number: GR-AMGEN-GRCSP2017115680

PATIENT
  Age: 78 Year
  Sex: Female

DRUGS (1)
  1. VECTIBIX [Suspect]
     Active Substance: PANITUMUMAB
     Indication: COLORECTAL CANCER METASTATIC
     Dosage: UNK UNK, TWICE A MONTH
     Route: 065
     Dates: start: 201705, end: 201707

REACTIONS (8)
  - Disease progression [Unknown]
  - Blood test abnormal [Unknown]
  - Onychomadesis [Unknown]
  - Acne [Unknown]
  - Skin exfoliation [Unknown]
  - Deformity [Unknown]
  - Drug ineffective [Unknown]
  - Erythema [Unknown]

NARRATIVE: CASE EVENT DATE: 2017
